FAERS Safety Report 10430728 (Version 1)
Quarter: 2014Q3

REPORT INFORMATION
  Report Type: Spontaneous
  Country: JP (occurrence: JP)
  Receive Date: 20140904
  Receipt Date: 20140904
  Transmission Date: 20150326
  Serious: Yes (Other)
  Sender: FDA-Public Use
  Company Number: JP-CUBIST PHARMACEUTICAL, INC.-2014CBST001264

PATIENT

DRUGS (7)
  1. CUBICIN [Suspect]
     Active Substance: DAPTOMYCIN
     Indication: STAPHYLOCOCCAL INFECTION
     Dosage: 6 MG/KG, QD
     Route: 042
  2. CUBICIN [Suspect]
     Active Substance: DAPTOMYCIN
     Indication: GRAFT INFECTION
  3. CUBICIN [Suspect]
     Active Substance: DAPTOMYCIN
     Indication: OFF LABEL USE
  4. RIFAMPICIN [Suspect]
     Active Substance: RIFAMPIN
     Indication: GRAFT INFECTION
     Dosage: 300 MG, BID
     Route: 048
  5. VANCOMYCIN [Suspect]
     Active Substance: VANCOMYCIN
     Indication: STAPHYLOCOCCAL INFECTION
     Dosage: 1 G, TID
     Route: 042
  6. RIFAMPICIN [Suspect]
     Active Substance: RIFAMPIN
     Indication: STAPHYLOCOCCAL INFECTION
     Dosage: 300 MG, BID
     Route: 048
  7. VANCOMYCIN [Suspect]
     Active Substance: VANCOMYCIN
     Indication: GRAFT INFECTION

REACTIONS (4)
  - Mediastinal abscess [Recovering/Resolving]
  - Antimicrobial susceptibility test resistant [Unknown]
  - Implant site inflammation [Recovering/Resolving]
  - Staphylococcal bacteraemia [Recovering/Resolving]
